FAERS Safety Report 5245079-2 (Version None)
Quarter: 2007Q1

REPORT INFORMATION
  Report Type: 
  Country: None (occurrence: None)
  Receive Date: 20070223
  Receipt Date: 20070212
  Transmission Date: 20070707
  Serious: Yes (Other)
  Sender: FDA-Public Use
  Company Number: PHEH2007US01962

PATIENT
  Age: 15 Year
  Sex: Male

DRUGS (2)
  1. HUMAN GROWTH HORMONE, RECOMBINANT [Concomitant]
  2. RITALIN [Suspect]

REACTIONS (2)
  - FALL [None]
  - WRIST FRACTURE [None]
